FAERS Safety Report 5630762-7 (Version None)
Quarter: 2008Q1

REPORT INFORMATION
  Report Type: 
  Country: None (occurrence: None)
  Receive Date: 20080219
  Receipt Date: 20080213
  Transmission Date: 20080703
  Serious: Yes (Other)
  Sender: FDA-Public Use
  Company Number: AU-ASTRAZENECA-2008AP01047

PATIENT
  Age: 25737 Day
  Sex: Male

DRUGS (19)
  1. MEROPENEM [Suspect]
     Route: 042
  2. VANCOMYCIN HCL [Suspect]
     Indication: STAPHYLOCOCCAL SEPSIS
     Route: 065
  3. ALLOPURINOL [Concomitant]
  4. AMILORIDE HYDROCHLORIDE [Concomitant]
  5. ASPIRIN [Concomitant]
  6. CANDESARTAN CILEXETIL [Concomitant]
  7. CLONIDINE HYDROCHLORIDE [Concomitant]
  8. DICLOFENAC POTASSIUM [Concomitant]
  9. ENOXAPARIN SODIUM [Concomitant]
  10. FELODIPINE [Concomitant]
  11. FUROSEMIDE [Concomitant]
  12. GABAPENTIN [Concomitant]
  13. GLICLAZIDE [Concomitant]
  14. NICOTINIC ACID [Concomitant]
  15. ORLISTAT [Concomitant]
  16. OXYCODONE HYDROCHLORIDE [Concomitant]
  17. PRAVASTATIN SODIUM [Concomitant]
  18. TRAMADOL HCL [Concomitant]
  19. CHLORAMPHENICOL [Concomitant]

REACTIONS (1)
  - DERMATITIS BULLOUS [None]
